FAERS Safety Report 7335773-1 (Version None)
Quarter: 2011Q1

REPORT INFORMATION
  Report Type: 
  Country: None (occurrence: None)
  Receive Date: 20110307
  Receipt Date: 20110303
  Transmission Date: 20110831
  Serious: Yes (Other)
  Sender: FDA-Public Use
  Company Number: US-PFIZER INC-2011047355

PATIENT
  Sex: Female

DRUGS (1)
  1. CELEBREX [Suspect]
     Indication: ARTHROPATHY
     Dosage: UNK
     Route: 048
     Dates: start: 20000101

REACTIONS (2)
  - CARDIAC DISORDER [None]
  - ATRIAL FIBRILLATION [None]
